FAERS Safety Report 6993626-2 (Version None)
Quarter: 2010Q3

REPORT INFORMATION
  Report Type: 
  Country: None (occurrence: None)
  Receive Date: 20100917
  Receipt Date: 20070831
  Transmission Date: 20110219
  Serious: Yes (Hospitalization)
  Sender: FDA-Public Use
  Company Number: US-ASTRAZENECA-2006UW22064

PATIENT
  Age: 60 Year
  Sex: Female
  Weight: 77.1 kg

DRUGS (20)
  1. SEROQUEL [Suspect]
     Indication: SCHIZOPHRENIA
     Route: 048
     Dates: start: 20010420, end: 20040101
  2. SEROQUEL [Suspect]
     Dosage: 100-800 MG
     Route: 048
     Dates: start: 20010427
  3. HALDOL [Concomitant]
     Dates: start: 19900101
  4. RISPERDAL [Concomitant]
     Dosage: 2-4 MG
     Dates: start: 19950101
  5. RISPERDAL [Concomitant]
     Dates: start: 20010101
  6. ZYPREXA [Concomitant]
     Dosage: 10-20 MG
     Dates: start: 20010126
  7. DIPHENHYDRAM [Concomitant]
     Dates: start: 20010202
  8. EFFEXOR XR [Concomitant]
     Dosage: 37.5-150 MG
     Dates: start: 20010427
  9. REMERON [Concomitant]
     Dosage: 15-30 MG
     Dates: start: 20010703
  10. PAXIL [Concomitant]
     Dates: start: 20020423
  11. NEURONTIN [Concomitant]
     Dates: start: 20020508
  12. GLIPIZIDE [Concomitant]
     Dates: start: 20040102
  13. PERI-COLACE [Concomitant]
     Indication: CONSTIPATION
     Dates: start: 20040102
  14. GLUCOPHAGE [Concomitant]
     Indication: DIABETES MELLITUS
     Route: 048
     Dates: start: 20040102
  15. AMBIEN [Concomitant]
     Indication: SLEEP DISORDER
     Dates: start: 20040102
  16. LISINOPRIL [Concomitant]
     Route: 048
     Dates: start: 20060103
  17. GEMFIBROZIL [Concomitant]
     Route: 048
     Dates: start: 20060124
  18. ATENOLOL [Concomitant]
     Route: 048
     Dates: start: 20020318
  19. FLONASE 0.05% [Concomitant]
     Route: 045
     Dates: start: 20011022
  20. HYDROCHLOROTHIAZIDE [Concomitant]
     Dosage: 12
     Dates: start: 20020219

REACTIONS (2)
  - DIABETES MELLITUS [None]
  - TYPE 2 DIABETES MELLITUS [None]
